FAERS Safety Report 25435595 (Version 2)
Quarter: 2025Q2

REPORT INFORMATION
  Report Type: Spontaneous
  Country: ES (occurrence: ES)
  Receive Date: 20250613
  Receipt Date: 20250630
  Transmission Date: 20250716
  Serious: Yes (Hospitalization)
  Sender: VERITY PHARMACEUTICALS INC.
  Company Number: ES-VER-202500005

PATIENT
  Age: 71 Year
  Sex: Male

DRUGS (2)
  1. TRIPTORELIN PAMOATE [Suspect]
     Active Substance: TRIPTORELIN PAMOATE
     Indication: Prostate cancer
     Dosage: POWDER FOR PROLONGED-RELEASE SUSPENSION FOR INJECT
     Route: 030
     Dates: start: 20240613
  2. ERLEADA [Suspect]
     Active Substance: APALUTAMIDE
     Indication: Prostate cancer
     Dosage: 1) 28 TABLETS
     Route: 048
     Dates: start: 20240704, end: 20240805

REACTIONS (3)
  - Bundle branch block left [Not Recovered/Not Resolved]
  - Cardiac failure acute [Recovered/Resolved]
  - Long QT syndrome [Recovering/Resolving]

NARRATIVE: CASE EVENT DATE: 20240715
